FAERS Safety Report 9793391 (Version 2)
Quarter: 2014Q1

REPORT INFORMATION
  Report Type: Other
  Country: JP (occurrence: JP)
  Receive Date: 20140102
  Receipt Date: 20140102
  Transmission Date: 20141002
  Serious: Yes (Other)
  Sender: FDA-Public Use
  Company Number: JP-US-EMD SERONO, INC.-310004L09JPN

PATIENT
  Sex: Female

DRUGS (8)
  1. GONAL-F [Suspect]
     Indication: SECONDARY HYPOGONADISM
     Route: 065
     Dates: start: 20070625
  2. CHORIONIC GONADOTROPHIN [Suspect]
     Indication: SECONDARY HYPOGONADISM
     Route: 065
     Dates: start: 20061023
  3. CHORIONIC GONADOTROPHIN [Suspect]
     Route: 065
     Dates: start: 20061106, end: 20080709
  4. HCG [Concomitant]
     Indication: SECONDARY HYPOGONADISM
     Route: 065
     Dates: start: 20090128
  5. FLAVITAN [Concomitant]
     Indication: ACNE
     Route: 065
     Dates: start: 20071022, end: 20080206
  6. PYDOXAL [Concomitant]
     Indication: ACNE
     Route: 065
     Dates: start: 20071022, end: 20080206
  7. RULID [Concomitant]
     Indication: ACNE
     Route: 065
     Dates: start: 20071022, end: 20080206
  8. DALACIN T [Concomitant]
     Indication: ACNE
     Route: 065
     Dates: end: 20080206

REACTIONS (2)
  - Abortion spontaneous [Unknown]
  - Exposure via father [None]
